FAERS Safety Report 15204185 (Version 1)
Quarter: 2018Q3

REPORT INFORMATION
  Report Type: Spontaneous
  Country: DK (occurrence: DK)
  Receive Date: 20180726
  Receipt Date: 20180726
  Transmission Date: 20181010
  Serious: Yes (Other)
  Sender: FDA-Public Use
  Company Number: DK-ALLERGAN-1837115US

PATIENT
  Age: 41 Year
  Sex: Female

DRUGS (3)
  1. ESCITALOPRAM OXALATE ? BP [Suspect]
     Active Substance: ESCITALOPRAM OXALATE
     Indication: DEPRESSION
     Dosage: MOST OF THE TIME IN TREATMENT SHE USED 20 MG
     Route: 048
     Dates: start: 2006
  2. EFEXOR DEPOT [Suspect]
     Active Substance: VENLAFAXINE HYDROCHLORIDE
     Indication: DEPRESSION
     Dosage: 75 MG
     Route: 048
     Dates: start: 20061031
  3. ALOPAM [Suspect]
     Active Substance: OXAZEPAM
     Indication: ANXIETY
     Route: 048

REACTIONS (13)
  - Social anxiety disorder [Unknown]
  - Fatigue [Unknown]
  - Tinnitus [Unknown]
  - Sensory disturbance [Unknown]
  - Disturbance in attention [Unknown]
  - Obsessive-compulsive disorder [Unknown]
  - Bipolar disorder [Unknown]
  - Attention deficit/hyperactivity disorder [Unknown]
  - Memory impairment [Unknown]
  - Anxiety [Unknown]
  - Fibromyalgia [Unknown]
  - Hypomania [Unknown]
  - Psychotic disorder [Unknown]
